FAERS Safety Report 17655996 (Version 2)
Quarter: 2020Q4

REPORT INFORMATION
  Report Type: Spontaneous
  Country: US (occurrence: US)
  Receive Date: 20200410
  Receipt Date: 20201110
  Transmission Date: 20210113
  Serious: Yes (Other)
  Sender: FDA-Public Use
  Company Number: US-ASTRAZENECA-2020SE47983

PATIENT
  Age: 24382 Day
  Sex: Female

DRUGS (72)
  1. CEPHALEXIN. [Concomitant]
     Active Substance: CEPHALEXIN
  2. VALSART/HCTZ [Concomitant]
  3. MIRTAZAPINE. [Concomitant]
     Active Substance: MIRTAZAPINE
  4. CHONDROITIN [Concomitant]
     Active Substance: CHONDROITIN
  5. SULFA [Concomitant]
     Active Substance: UNSPECIFIED INGREDIENT
  6. OMEPRAZOLE. [Suspect]
     Active Substance: OMEPRAZOLE
     Indication: GASTROOESOPHAGEAL REFLUX DISEASE
     Dosage: GENERIC
     Route: 065
     Dates: start: 20180720, end: 2019
  7. DEXILANT [Suspect]
     Active Substance: DEXLANSOPRAZOLE
     Indication: GASTROOESOPHAGEAL REFLUX DISEASE
     Dosage: 60.0MG UNKNOWN
     Route: 048
     Dates: start: 20180612
  8. LISINOPRIL. [Concomitant]
     Active Substance: LISINOPRIL
     Indication: BLOOD PRESSURE MEASUREMENT
     Dates: start: 20190130
  9. LOSARTAN. [Concomitant]
     Active Substance: LOSARTAN
     Indication: BLOOD PRESSURE MEASUREMENT
     Dates: start: 20180816, end: 20181120
  10. DECADRON [Concomitant]
     Active Substance: DEXAMETHASONE
  11. DEXILANT [Suspect]
     Active Substance: DEXLANSOPRAZOLE
     Indication: GASTROOESOPHAGEAL REFLUX DISEASE
     Route: 065
     Dates: start: 20170314, end: 2018
  12. SERTRALINE [Concomitant]
     Active Substance: SERTRALINE HYDROCHLORIDE
  13. BETAMETH [Concomitant]
  14. RECLAST [Concomitant]
     Active Substance: ZOLEDRONIC ACID
  15. PENICILLIN [Concomitant]
     Active Substance: PENICILLIN
  16. NAPROXEN SODIUM. [Concomitant]
     Active Substance: NAPROXEN SODIUM
  17. IRBESARTAN-HYDROCHLOROTHIAZIDE [Concomitant]
     Active Substance: HYDROCHLOROTHIAZIDE\IRBESARTAN
  18. NEXIUM [Suspect]
     Active Substance: ESOMEPRAZOLE MAGNESIUM
     Indication: GASTROOESOPHAGEAL REFLUX DISEASE
     Dosage: GENERIC40.0MG UNKNOWN
     Route: 048
     Dates: start: 20150522
  19. DEXILANT [Suspect]
     Active Substance: DEXLANSOPRAZOLE
     Indication: GASTROOESOPHAGEAL REFLUX DISEASE
     Route: 065
     Dates: start: 1989, end: 2018
  20. TUMS [Concomitant]
     Active Substance: CALCIUM CARBONATE
  21. AMLODIPINE [Concomitant]
     Active Substance: AMLODIPINE BESYLATE
  22. LORAZEPAM. [Concomitant]
     Active Substance: LORAZEPAM
  23. METHYLPREDNISOLONE. [Concomitant]
     Active Substance: METHYLPREDNISOLONE
  24. CHANTIX [Concomitant]
     Active Substance: VARENICLINE TARTRATE
  25. GAVILYTE [Concomitant]
  26. GLUCOSAMINE [Concomitant]
     Active Substance: GLUCOSAMINE
  27. CELEBREX [Concomitant]
     Active Substance: CELECOXIB
  28. OXYBUTYNIN. [Concomitant]
     Active Substance: OXYBUTYNIN CHLORIDE
  29. TRIAMCINOLONE ACETONIDE. [Concomitant]
     Active Substance: TRIAMCINOLONE ACETONIDE
  30. CRESTOR [Concomitant]
     Active Substance: ROSUVASTATIN CALCIUM
  31. BENZODIAZEPIN [Concomitant]
     Active Substance: BENZODIAZEPINE
  32. CITALOPRAM [Concomitant]
     Active Substance: CITALOPRAM HYDROBROMIDE
  33. MYRBETRIQ [Concomitant]
     Active Substance: MIRABEGRON
  34. DIAZEPAM. [Concomitant]
     Active Substance: DIAZEPAM
  35. DULOXETINE. [Concomitant]
     Active Substance: DULOXETINE
  36. CODEINE SULFATE. [Concomitant]
     Active Substance: CODEINE SULFATE
  37. POTASSIUM [Concomitant]
     Active Substance: POTASSIUM
  38. TEMAZEPAM. [Concomitant]
     Active Substance: TEMAZEPAM
  39. ZOLOFT [Concomitant]
     Active Substance: SERTRALINE HYDROCHLORIDE
  40. OMEPRAZOLE. [Suspect]
     Active Substance: OMEPRAZOLE
     Indication: GASTROOESOPHAGEAL REFLUX DISEASE
     Dosage: GENERIC40.0MG UNKNOWN
     Route: 048
     Dates: start: 20180305
  41. RANITIDINE. [Concomitant]
     Active Substance: RANITIDINE
     Dates: start: 20170830
  42. CLONAZEPAM. [Concomitant]
     Active Substance: CLONAZEPAM
  43. METOPROLOL. [Concomitant]
     Active Substance: METOPROLOL
  44. GABAPENTIN. [Concomitant]
     Active Substance: GABAPENTIN
  45. VALACYCLOVIR [Concomitant]
     Active Substance: VALACYCLOVIR HYDROCHLORIDE
  46. ONDANSETRON [Concomitant]
     Active Substance: ONDANSETRON
  47. LYRICA [Concomitant]
     Active Substance: PREGABALIN
  48. NYSTATIN. [Concomitant]
     Active Substance: NYSTATIN
  49. LISINOPRIL AND HYDROCHLOROTHIAZIDE [Concomitant]
     Active Substance: HYDROCHLOROTHIAZIDE\LISINOPRIL
  50. VITAMIN D [Concomitant]
     Active Substance: VITAMIN D NOS
  51. NEXIUM [Suspect]
     Active Substance: ESOMEPRAZOLE MAGNESIUM
     Indication: GASTROOESOPHAGEAL REFLUX DISEASE
     Route: 048
     Dates: start: 1989, end: 2018
  52. TRAMADOL. [Concomitant]
     Active Substance: TRAMADOL
     Indication: PAIN
     Dates: start: 20120614
  53. DOXYCYCLINE. [Concomitant]
     Active Substance: DOXYCYCLINE
     Indication: INFECTION
     Dates: start: 20120614
  54. ULTRAM [Concomitant]
     Active Substance: TRAMADOL HYDROCHLORIDE
     Indication: PAIN
     Dates: start: 2013, end: 2015
  55. AZITHROMYCIN ANHYDROUS. [Concomitant]
     Active Substance: AZITHROMYCIN ANHYDROUS
     Indication: INFECTION
     Dates: start: 2015, end: 2016
  56. MELOXICAM. [Concomitant]
     Active Substance: MELOXICAM
     Indication: ARTHRITIS
     Dates: start: 20170216, end: 20170429
  57. CYCLOBENZAPRINE. [Concomitant]
     Active Substance: CYCLOBENZAPRINE
  58. IRBESARTAN. [Concomitant]
     Active Substance: IRBESARTAN
  59. TRIAMCINOLON [Concomitant]
  60. DICYCLOMINE [Concomitant]
     Active Substance: DICYCLOMINE HYDROCHLORIDE
  61. SUCRALFATE. [Concomitant]
     Active Substance: SUCRALFATE
  62. CALCIUM [Concomitant]
     Active Substance: CALCIUM
  63. CORTISONE [Concomitant]
     Active Substance: CORTISONE
  64. NEXIUM [Suspect]
     Active Substance: ESOMEPRAZOLE MAGNESIUM
     Indication: GASTROOESOPHAGEAL REFLUX DISEASE
     Route: 048
     Dates: start: 20150625, end: 2018
  65. NAPROXEN. [Concomitant]
     Active Substance: NAPROXEN
     Indication: PAIN
     Dates: start: 2016, end: 2017
  66. ZOLPIDEM [Concomitant]
     Active Substance: ZOLPIDEM TARTRATE
  67. ARIPIPRAZOLE. [Concomitant]
     Active Substance: ARIPIPRAZOLE
  68. NORTRIIPTYLIN [Concomitant]
  69. LIDOCAINE. [Concomitant]
     Active Substance: LIDOCAINE
  70. AVELOX [Concomitant]
     Active Substance: MOXIFLOXACIN HYDROCHLORIDE
  71. PREVNAR [Concomitant]
     Active Substance: PNEUMOCOCCAL 7-VALENT CONJUGATE VACCINE (DIPHTHERIA CRM197 PROTEIN)
  72. NICODERM CQ [Concomitant]
     Active Substance: NICOTINE

REACTIONS (3)
  - Rebound acid hypersecretion [Unknown]
  - Renal failure [Unknown]
  - Chronic kidney disease [Not Recovered/Not Resolved]

NARRATIVE: CASE EVENT DATE: 20170101
